FAERS Safety Report 8608936 (Version 4)
Quarter: 2014Q2

REPORT INFORMATION
  Report Type: Spontaneous
  Country: US (occurrence: US)
  Receive Date: 20120611
  Receipt Date: 20140606
  Transmission Date: 20141212
  Serious: Yes (Other)
  Sender: FDA-Public Use
  Company Number: US-ASTRAZENECA-2007UW11315

PATIENT
  Age: 83 Year
  Sex: Female
  Weight: 75.8 kg

DRUGS (13)
  1. ARIMIDEX [Suspect]
     Route: 048
  2. NEXIUM [Suspect]
     Indication: GASTROOESOPHAGEAL REFLUX DISEASE
     Route: 048
     Dates: start: 2005, end: 201312
  3. LISINOPRIL [Suspect]
     Route: 048
  4. TAMOXIFEN [Suspect]
     Route: 048
  5. MYCARDIS [Concomitant]
     Indication: BLOOD PRESSURE ABNORMAL
  6. SYNTHROID [Concomitant]
     Indication: THYROID DISORDER
  7. ASPIRIN [Concomitant]
  8. COREG CR [Concomitant]
     Indication: CARDIAC DISORDER
  9. DUXAZOSIN MESYLATE [Concomitant]
     Indication: CARDIAC DISORDER
  10. DUXAZOSIN MESYLATE [Concomitant]
     Indication: BLOOD PRESSURE ABNORMAL
  11. PROTONIX [Concomitant]
     Indication: GASTROOESOPHAGEAL REFLUX DISEASE
  12. FUROSEMIDE [Concomitant]
     Indication: FLUID RETENTION
  13. METROGEL [Concomitant]
     Indication: ROSACEA
     Dosage: DAILY

REACTIONS (9)
  - Breast cancer female [Recovering/Resolving]
  - Bone disorder [Unknown]
  - Malaise [Unknown]
  - Bone disorder [Unknown]
  - Musculoskeletal discomfort [Unknown]
  - Body height decreased [Unknown]
  - Glucose tolerance impaired [Unknown]
  - Osteoporosis [Not Recovered/Not Resolved]
  - Drug hypersensitivity [Unknown]
